FAERS Safety Report 7623826-X (Version None)
Quarter: 2011Q3

REPORT INFORMATION
  Report Type: 
  Country: None (occurrence: None)
  Receive Date: 20110720
  Receipt Date: 20110718
  Transmission Date: 20111222
  Serious: Yes (Other)
  Sender: FDA-Public Use
  Company Number: US-PFIZER INC-2011162567

PATIENT
  Sex: Female
  Weight: 100 kg

DRUGS (4)
  1. ZARONTIN [Suspect]
     Dosage: UNK
     Route: 048
  2. METFORMIN [Concomitant]
     Dosage: UNK
  3. ZARONTIN [Suspect]
     Dosage: 750 MG, DAILY
     Route: 048
  4. DILANTIN [Concomitant]
     Dosage: UNK

REACTIONS (1)
  - CONVULSION [None]
